FAERS Safety Report 8169073-7 (Version None)
Quarter: 2012Q1

REPORT INFORMATION
  Report Type: 
  Country: None (occurrence: None)
  Receive Date: 20120227
  Receipt Date: 20120217
  Transmission Date: 20120608
  Serious: Yes (Hospitalization)
  Sender: FDA-Public Use
  Company Number: US-ABBOTT-12P-163-0906145-00

PATIENT
  Sex: Male
  Weight: 118.04 kg

DRUGS (2)
  1. HUMIRA [Suspect]
     Indication: PSORIATIC ARTHROPATHY
     Dates: start: 20080101, end: 20110701
  2. HUMIRA [Suspect]
     Indication: PSORIASIS
     Dates: start: 20120201

REACTIONS (5)
  - PSORIASIS [None]
  - INTERVERTEBRAL DISC PROTRUSION [None]
  - ARTHRITIS [None]
  - PNEUMONIA [None]
  - EAR INFECTION [None]
